FAERS Safety Report 7564580-X (Version None)
Quarter: 2011Q2

REPORT INFORMATION
  Report Type: 
  Country: None (occurrence: None)
  Receive Date: 20110622
  Receipt Date: 20100609
  Transmission Date: 20111010
  Serious: Yes (Death)
  Sender: FDA-Public Use
  Company Number: US-MYLANLABS-2010S1010392

PATIENT
  Age: 43 Year
  Sex: Male

DRUGS (16)
  1. AMANTADINE HCL [Concomitant]
  2. PERI-COLACE [Concomitant]
  3. REMERON [Concomitant]
  4. LORAZEPAM [Concomitant]
  5. CLOZAPINE [Suspect]
     Route: 048
     Dates: start: 20070807
  6. LITHIUM [Concomitant]
  7. DEPAKOTE [Concomitant]
  8. ACIDOPHILUS [Concomitant]
  9. SYNTHROID [Concomitant]
  10. DUONEB [Concomitant]
  11. LACTULOSE [Concomitant]
  12. ASPIRIN [Concomitant]
  13. PREVACID [Concomitant]
  14. CLOZAPINE [Suspect]
     Indication: SCHIZOPHRENIA
     Route: 048
     Dates: start: 20070807
  15. CELEXA [Concomitant]
  16. DETROL [Concomitant]

REACTIONS (1)
  - RESPIRATORY FAILURE [None]
